FAERS Safety Report 4770656-2 (Version None)
Quarter: 2005Q3

REPORT INFORMATION
  Report Type: 
  Country: None (occurrence: None)
  Receive Date: 20050915
  Receipt Date: 20050907
  Transmission Date: 20060218
  Serious: Yes (Other)
  Sender: FDA-Public Use
  Company Number: US-MERCK-0509USA00790

PATIENT
  Age: 65 Year
  Sex: Female

DRUGS (1)
  1. VIOXX [Suspect]
     Indication: ARTHRITIS
     Route: 048
     Dates: end: 20000101

REACTIONS (4)
  - CARDIAC FAILURE CONGESTIVE [None]
  - FEAR [None]
  - STENT PLACEMENT [None]
  - WEIGHT INCREASED [None]
